FAERS Safety Report 8242542-7 (Version None)
Quarter: 2012Q1

REPORT INFORMATION
  Report Type: 
  Country: None (occurrence: None)
  Receive Date: 20120329
  Receipt Date: 20120322
  Transmission Date: 20120608
  Serious: Yes (Other)
  Sender: FDA-Public Use
  Company Number: PHEH2012US006473

PATIENT
  Sex: Female

DRUGS (3)
  1. MIACALCIN [Suspect]
     Route: 045
  2. ATENOLOL [Concomitant]
  3. THYROID MEDICINE [Concomitant]

REACTIONS (1)
  - FALL [None]
